FAERS Safety Report 9092318 (Version 2)
Quarter: 2013Q2

REPORT INFORMATION
  Report Type: Spontaneous
  Country: ES (occurrence: ES)
  Receive Date: 20130201
  Receipt Date: 20130404
  Transmission Date: 20140414
  Serious: Yes (Other)
  Sender: FDA-Public Use
  Company Number: ES-VERTEX PHARMACEUTICALS INC.-2013-001431

PATIENT
  Age: 49 Year
  Sex: Female
  Weight: 60.7 kg

DRUGS (11)
  1. INCIVO [Suspect]
     Indication: HEPATITIS C
     Dosage: 750 MG, TID
     Route: 065
     Dates: start: 20120413
  2. RIBAVIRIN [Suspect]
     Indication: HEPATITIS C
     Dosage: DOSAGE FORM: TABLET, 2 TABLETS OF 200 MG IN THE MORNING AND 3 IN THE EVENING
     Route: 065
     Dates: start: 20120413
  3. RIBAVIRIN [Suspect]
     Dosage: DOSAGE FORM: TABLET
     Route: 065
  4. RIBAVIRIN [Suspect]
     Dosage: DOSAGE FORM: TABLET
     Route: 065
  5. RIBAVIRIN [Suspect]
     Dosage: DOSAGE FORM: TABLET, 2 TABLETS OF 200 MG IN THE MORNING AND 3 IN THE EVENING
     Route: 065
  6. PEGINTERFERON ALFA 2A [Suspect]
     Indication: HEPATITIS C
     Dosage: DOSAGE FORM: UNSPECIFIED
     Route: 065
     Dates: start: 20120413
  7. PEGINTERFERON ALFA 2A [Suspect]
     Dosage: DOSAGE FORM: UNSPECIFIED
     Route: 065
  8. LETROZOL [Concomitant]
     Indication: PRODUCT USED FOR UNKNOWN INDICATION
     Dosage: DOSAGE FORM: UNSPECIFIED
     Route: 065
  9. RADIOTHERAPY [Concomitant]
     Indication: PRODUCT USED FOR UNKNOWN INDICATION
     Dosage: DOSAGE FORM: UNSPECIFIED
     Route: 065
  10. CHEMOTHERAPY [Concomitant]
     Indication: PRODUCT USED FOR UNKNOWN INDICATION
     Dosage: DOSAGE FORM: UNSPECIFIED
     Route: 065
  11. OTHER DRUGS (UNSPECIFIED) [Concomitant]
     Indication: PRODUCT USED FOR UNKNOWN INDICATION
     Dosage: DOSAGE FORM: UNSPECIFIED
     Route: 065

REACTIONS (4)
  - Anaemia [Not Recovered/Not Resolved]
  - Musculoskeletal pain [Not Recovered/Not Resolved]
  - Anal pruritus [Recovered/Resolved]
  - Hypothyroidism [Not Recovered/Not Resolved]
